FAERS Safety Report 11714337 (Version 2)
Quarter: 2015Q4

REPORT INFORMATION
  Report Type: Spontaneous
  Country: US (occurrence: US)
  Receive Date: 20151109
  Receipt Date: 20151109
  Transmission Date: 20160304
  Serious: Yes (Hospitalization, Other)
  Sender: FDA-Public Use
  Company Number: US-BAYER-2015-454562

PATIENT
  Age: 74 Year
  Sex: Female
  Weight: 85.71 kg

DRUGS (2)
  1. ALEVE [Suspect]
     Active Substance: NAPROXEN SODIUM
     Indication: BACK PAIN
     Dosage: UNK
  2. REVATIO [Concomitant]
     Active Substance: SILDENAFIL CITRATE
     Indication: CARDIOVASCULAR DISORDER
     Dosage: 20 MG, TID

REACTIONS (6)
  - Myocardial infarction [None]
  - Faeces discoloured [None]
  - Haemorrhage [None]
  - Diarrhoea [None]
  - Gastric ulcer haemorrhage [None]
  - Blood count abnormal [None]

NARRATIVE: CASE EVENT DATE: 20150912
